FAERS Safety Report 7791983-0 (Version None)
Quarter: 2011Q4

REPORT INFORMATION
  Report Type: 
  Country: None (occurrence: None)
  Receive Date: 20111003
  Receipt Date: 20110929
  Transmission Date: 20120403
  Serious: Yes (Death)
  Sender: FDA-Public Use
  Company Number: PHHY2011DO86517

PATIENT
  Sex: Female

DRUGS (3)
  1. FORADIL [Suspect]
     Dosage: UNK UKN, UNK
  2. DIOVAN [Suspect]
     Dosage: UNK UKN, UNK
  3. BUDESONIDE [Suspect]
     Dosage: UNK UKN, UNK

REACTIONS (1)
  - DEATH [None]
